FAERS Safety Report 7769503-6 (Version None)
Quarter: 2011Q3

REPORT INFORMATION
  Report Type: 
  Country: None (occurrence: None)
  Receive Date: 20110922
  Receipt Date: 20110111
  Transmission Date: 20111222
  Serious: No
  Sender: FDA-Public Use
  Company Number: US-ASTRAZENECA-2011SE01988

PATIENT
  Age: 11455 Day
  Sex: Female
  Weight: 99.8 kg

DRUGS (3)
  1. SEROQUEL XR [Suspect]
     Indication: BIPOLAR DISORDER
     Route: 048
     Dates: start: 20100901, end: 20110106
  2. LITHIUM CARBONATE [Concomitant]
  3. BIRTH CONTROL PILLS [Concomitant]

REACTIONS (7)
  - NAUSEA [None]
  - ASTHENIA [None]
  - SLUGGISHNESS [None]
  - INSOMNIA [None]
  - FATIGUE [None]
  - DRUG DOSE OMISSION [None]
  - VOMITING [None]
